FAERS Safety Report 10079835 (Version 1)
Quarter: 2014Q2

REPORT INFORMATION
  Report Type: Spontaneous
  Country: US (occurrence: US)
  Receive Date: 20140415
  Receipt Date: 20140415
  Transmission Date: 20141212
  Serious: Yes (Other)
  Sender: FDA-Public Use
  Company Number: US-TEVA-474802USA

PATIENT
  Sex: Female

DRUGS (5)
  1. SIMVASTATIN [Suspect]
  2. AZITHROMYCIN [Concomitant]
  3. LOPERAMIDE [Concomitant]
  4. METFORMIN [Concomitant]
  5. WARFARIN [Concomitant]

REACTIONS (1)
  - Coeliac disease [Unknown]
